FAERS Safety Report 8022231-4 (Version None)
Quarter: 2011Q4

REPORT INFORMATION
  Report Type: 
  Country: None (occurrence: None)
  Receive Date: 20111229
  Receipt Date: 20111216
  Transmission Date: 20120403
  Serious: Yes (Hospitalization)
  Sender: FDA-Public Use
  Company Number: JP-2011-11685

PATIENT
  Age: 70 Year
  Sex: Female

DRUGS (2)
  1. PLETAL [Suspect]
     Indication: ARTERIOSCLEROSIS OBLITERANS
     Dosage: ORAL
     Route: 048
     Dates: end: 20090101
  2. NORVASC [Concomitant]

REACTIONS (3)
  - VARICOSE VEIN [None]
  - CONDITION AGGRAVATED [None]
  - CEREBELLAR HAEMORRHAGE [None]
